FAERS Safety Report 24115475 (Version 1)
Quarter: 2024Q3

REPORT INFORMATION
  Report Type: Spontaneous
  Country: US (occurrence: US)
  Receive Date: 20240721
  Receipt Date: 20240721
  Transmission Date: 20241016
  Serious: Yes (Other)
  Sender: NOVO NORDISK
  Company Number: US-NOVOPROD-1222063

PATIENT
  Age: 57 Year
  Sex: Female

DRUGS (1)
  1. WEGOVY [Suspect]
     Active Substance: SEMAGLUTIDE
     Indication: Weight control
     Dosage: 0.5 MG, QW
     Route: 058
     Dates: start: 20240508, end: 20240508

REACTIONS (13)
  - Gastrooesophageal reflux disease [Not Recovered/Not Resolved]
  - Pancreatitis [Not Recovered/Not Resolved]
  - Back pain [Not Recovered/Not Resolved]
  - Dry throat [Not Recovered/Not Resolved]
  - Hiccups [Not Recovered/Not Resolved]
  - White blood cell count increased [Unknown]
  - Abdominal pain [Not Recovered/Not Resolved]
  - Abdominal distension [Not Recovered/Not Resolved]
  - Headache [Not Recovered/Not Resolved]
  - Nausea [Not Recovered/Not Resolved]
  - Vomiting [Recovered/Resolved]
  - Diarrhoea [Not Recovered/Not Resolved]
  - Off label use [Recovered/Resolved]

NARRATIVE: CASE EVENT DATE: 20240508
